FAERS Safety Report 25458242 (Version 1)
Quarter: 2025Q2

REPORT INFORMATION
  Report Type: Spontaneous
  Country: US (occurrence: None)
  Receive Date: 20250620
  Receipt Date: 20250620
  Transmission Date: 20250716
  Serious: Yes (Hospitalization, Other)
  Sender: EMMAUS LIFE SCIENCES
  Company Number: US-Emmaus Medical, Inc.-EMM202411-000516

PATIENT
  Age: 10 Year
  Sex: Female

DRUGS (3)
  1. ENDARI [Suspect]
     Active Substance: GLUTAMINE
     Indication: Sickle cell disease
     Route: 048
     Dates: start: 2022, end: 2024
  2. ENDARI [Suspect]
     Active Substance: GLUTAMINE
     Route: 048
     Dates: start: 20241027
  3. OXBRYTA [Concomitant]
     Active Substance: VOXELOTOR
     Indication: Product used for unknown indication
     Route: 065

REACTIONS (4)
  - Acute chest syndrome [Unknown]
  - Hospitalisation [Unknown]
  - Pain [Unknown]
  - Therapy interrupted [Unknown]

NARRATIVE: CASE EVENT DATE: 20240101
